FAERS Safety Report 5939715-2 (Version None)
Quarter: 2008Q4

REPORT INFORMATION
  Report Type: 
  Country: None (occurrence: None)
  Receive Date: 20081031
  Receipt Date: 20081031
  Transmission Date: 20090506
  Serious: Yes (Other)
  Sender: FDA-Public Use
  Company Number: None

PATIENT
  Age: 71 Year
  Sex: Female
  Weight: 80 kg

DRUGS (1)
  1. LOVENOX [Suspect]
     Indication: THROMBOSIS PROPHYLAXIS
     Dosage: 40 MICROGRAMS ONCE BEFORE SURGER SQ
     Route: 058
     Dates: start: 20081029, end: 20081029

REACTIONS (1)
  - POST PROCEDURAL HAEMATOMA [None]
